FAERS Safety Report 11783532 (Version 2)
Quarter: 2015Q4

REPORT INFORMATION
  Report Type: Report from Study
  Country: JP (occurrence: JP)
  Receive Date: 20151127
  Receipt Date: 20151228
  Transmission Date: 20160305
  Serious: Yes (Hospitalization, Other)
  Sender: FDA-Public Use
  Company Number: JP-009507513-2011SP022460

PATIENT
  Age: 4 Year
  Sex: Female
  Weight: 10 kg

DRUGS (21)
  1. EXCEGRAN [Suspect]
     Active Substance: ZONISAMIDE
     Dosage: DIVIDED DOSE FREQUENCY UNKNOWN
     Route: 048
     Dates: start: 20100729, end: 20100905
  2. EXCEGRAN [Suspect]
     Active Substance: ZONISAMIDE
     Dosage: DIVIDED DOSE FREQUENCY UNKNOWN
     Route: 048
     Dates: end: 20100913
  3. EXCEGRAN [Suspect]
     Active Substance: ZONISAMIDE
     Dosage: DIVIDED DOSE FREQUENCY UNKNOWN
     Route: 048
     Dates: start: 20090629
  4. DEPAKENE [Suspect]
     Active Substance: VALPROIC ACID
     Dosage: DIVIDED DOSE FREQUENCY UNKNOWN
     Route: 048
     Dates: start: 20100517, end: 20110825
  5. DEPAKENE [Suspect]
     Active Substance: VALPROIC ACID
     Dosage: DIVIDED DOSE FREQUENCY UNKNOWN
     Route: 048
     Dates: start: 20110826, end: 20120605
  6. GABAPEN [Concomitant]
     Active Substance: GABAPENTIN
     Indication: EPILEPSY
     Dosage: DIVIDED DOSE FREQUENCY UNKNOWN
     Route: 048
  7. THYRADIN-S [Concomitant]
     Active Substance: LEVOTHYROXINE
     Indication: HYPOTHYROIDISM
     Dosage: 1-3 TABLETS/DAY
     Route: 048
  8. EXCEGRAN [Suspect]
     Active Substance: ZONISAMIDE
     Dosage: DIVIDED DOSE FREQUENCY UNKNOWN
     Route: 048
     Dates: start: 20100419, end: 20100728
  9. EXCEGRAN [Suspect]
     Active Substance: ZONISAMIDE
     Dosage: 110MG, DIVIDED DOSE FREQUENCY UNKNOWN
     Route: 048
  10. LAXOBERON [Concomitant]
     Active Substance: SODIUM PICOSULFATE
     Indication: CONSTIPATION
     Dosage: 6-8 DROPS
     Route: 048
  11. LAXOBERON [Concomitant]
     Active Substance: SODIUM PICOSULFATE
     Dosage: 8-12 DROPS
     Route: 048
  12. DIAZOXIDE [Suspect]
     Active Substance: DIAZOXIDE
     Indication: HYPOGLYCAEMIA
     Dosage: MORNING 20 MG EVENING 40 MG
     Route: 048
     Dates: start: 20081110, end: 20101014
  13. DEPAKENE [Suspect]
     Active Substance: VALPROIC ACID
     Indication: EPILEPSY
     Dosage: DIVIDED DOSE FREQUENCY UNKNOWN
     Route: 048
     Dates: end: 20100518
  14. THYRADIN-S [Concomitant]
     Active Substance: LEVOTHYROXINE
     Dosage: 1-4 TABLETS/DAY
     Route: 048
     Dates: end: 20120123
  15. DIAZOXIDE [Suspect]
     Active Substance: DIAZOXIDE
     Dosage: MORNING 15 MG EVENING 35 MG
     Route: 048
     Dates: start: 20101015
  16. SODIUM PICOSULFATE [Concomitant]
     Active Substance: SODIUM PICOSULFATE
     Indication: CONSTIPATION
     Dosage: 8-12 DROPS
     Route: 048
  17. EXCEGRAN [Suspect]
     Active Substance: ZONISAMIDE
     Indication: EPILEPSY
     Dosage: DIVIDED DOSE FREQUENCY UNKNOWN
     Route: 048
     Dates: end: 20100418
  18. EXCEGRAN [Suspect]
     Active Substance: ZONISAMIDE
     Dosage: DIVIDED DOSE FREQUENCY UNKNOWN
     Route: 048
     Dates: start: 20090507
  19. DEPAKENE [Suspect]
     Active Substance: VALPROIC ACID
     Dosage: DIVIDED DOSE UNKNOWN
     Route: 048
     Dates: start: 20120604
  20. GABAPEN [Concomitant]
     Active Substance: GABAPENTIN
     Dosage: DIVIDED DOSE FREQUENCY UNKNOWN
     Route: 048
  21. MAGNESIUM OXIDE. [Concomitant]
     Active Substance: MAGNESIUM OXIDE
     Indication: CONSTIPATION
     Dosage: DIVIDED DOSE FREQUENCY UNKNOWN
     Route: 048

REACTIONS (52)
  - Upper respiratory tract inflammation [Recovered/Resolved]
  - Blood urea increased [Recovered/Resolved]
  - Upper respiratory tract inflammation [Recovered/Resolved]
  - C-reactive protein increased [Recovered/Resolved]
  - Hypoglycaemia [Recovered/Resolved]
  - Bronchitis [Recovered/Resolved]
  - Otitis media acute [Recovered/Resolved]
  - Varicella [Recovered/Resolved]
  - Ketonuria [Recovered/Resolved]
  - Ammonia increased [Recovered/Resolved]
  - C-reactive protein increased [Recovered/Resolved]
  - C-reactive protein increased [Recovered/Resolved]
  - Otitis media acute [Recovered/Resolved]
  - White blood cell count increased [Recovered/Resolved]
  - Ketonuria [Recovered/Resolved]
  - Hypoglycaemia [Recovered/Resolved]
  - Arthropod sting [Recovered/Resolved]
  - Bronchitis [Recovered/Resolved]
  - Hypoglycaemia [Recovering/Resolving]
  - Blood urea increased [Recovered/Resolved]
  - White blood cell count increased [Recovered/Resolved]
  - Epilepsy [Recovered/Resolved]
  - White blood cell count increased [Recovered/Resolved]
  - Blood urea increased [Recovered/Resolved]
  - Blood uric acid increased [Recovered/Resolved]
  - Bronchitis [Recovered/Resolved]
  - Otitis media acute [Recovered/Resolved]
  - Somnolence [Recovered/Resolved]
  - Influenza [Recovered/Resolved]
  - Bronchitis [Recovered/Resolved]
  - Upper respiratory tract inflammation [Recovered/Resolved]
  - Upper respiratory tract inflammation [Recovered/Resolved]
  - Ammonia increased [Recovered/Resolved]
  - Otitis media acute [Recovered/Resolved]
  - C-reactive protein increased [Recovered/Resolved]
  - C-reactive protein increased [Recovered/Resolved]
  - Hypoglycaemia [Recovered/Resolved]
  - Upper respiratory tract inflammation [Recovered/Resolved]
  - Upper respiratory tract inflammation [Recovered/Resolved]
  - Decreased appetite [Recovered/Resolved]
  - Decreased appetite [Recovered/Resolved]
  - Pharyngitis [Recovered/Resolved]
  - Bronchitis [Recovered/Resolved]
  - Hypoglycaemia [Recovered/Resolved]
  - Hypoglycaemia [Recovered/Resolved]
  - Upper respiratory tract inflammation [Recovered/Resolved]
  - Ammonia increased [Recovered/Resolved]
  - C-reactive protein increased [Recovered/Resolved]
  - Epilepsy [Recovering/Resolving]
  - Upper respiratory tract inflammation [Recovered/Resolved]
  - Hypoglycaemia [Recovered/Resolved]
  - Pertussis [Recovered/Resolved]

NARRATIVE: CASE EVENT DATE: 20081113
